FAERS Safety Report 4297162-6 (Version None)
Quarter: 2004Q1

REPORT INFORMATION
  Report Type: 
  Country: None (occurrence: None)
  Receive Date: 20040217
  Receipt Date: 20040217
  Transmission Date: 20041129
  Serious: Yes (Other)
  Sender: FDA-Public Use
  Company Number: None

PATIENT
  Age: 22 Year
  Sex: Male

DRUGS (2)
  1. PHENYTEK [Suspect]
     Dosage: CAPSULE
  2. PHENYTEK [Suspect]

REACTIONS (1)
  - MEDICATION ERROR [None]
